FAERS Safety Report 8620735-4 (Version None)
Quarter: 2012Q3

REPORT INFORMATION
  Report Type: 
  Country: None (occurrence: None)
  Receive Date: 20120824
  Receipt Date: 20120817
  Transmission Date: 20120928
  Serious: Yes (Other)
  Sender: FDA-Public Use
  Company Number: US-US-EMD SERONO, INC.-7155724

PATIENT
  Sex: Male

DRUGS (1)
  1. NOVANTRONE [Suspect]
     Indication: MULTIPLE SCLEROSIS

REACTIONS (2)
  - CARDIAC FAILURE [None]
  - MYOCARDIAL INFARCTION [None]
